APPROVED DRUG PRODUCT: FAMOTIDINE
Active Ingredient: FAMOTIDINE
Strength: 10MG
Dosage Form/Route: TABLET;ORAL
Application: A215766 | Product #001
Applicant: ANNORA PHARMA PRIVATE LTD
Approved: Nov 8, 2021 | RLD: No | RS: No | Type: OTC